FAERS Safety Report 5146716-3 (Version None)
Quarter: 2006Q4

REPORT INFORMATION
  Report Type: 
  Country: None (occurrence: None)
  Receive Date: 20061109
  Receipt Date: 20061107
  Transmission Date: 20070319
  Serious: Yes (Death)
  Sender: FDA-Public Use
  Company Number: US-BRISTOL-MYERS SQUIBB COMPANY-13569298

PATIENT
  Age: 72 Year
  Sex: Male
  Weight: 55 kg

DRUGS (9)
  1. MEGACE [Suspect]
     Indication: DECREASED APPETITE
     Dates: start: 20060510
  2. MEGACE [Suspect]
     Indication: WEIGHT DECREASED
     Dates: start: 20060510
  3. LASIX [Concomitant]
  4. TOPROL-XL [Concomitant]
  5. IMDUR [Concomitant]
  6. ASPIRIN [Concomitant]
  7. XANAX [Concomitant]
  8. ALBUTEROL [Concomitant]
     Route: 055
  9. NITROGLYCERIN [Concomitant]

REACTIONS (1)
  - DEATH [None]
